FAERS Safety Report 8995261 (Version 2)
Quarter: 2013Q1

REPORT INFORMATION
  Report Type: Spontaneous
  Country: US (occurrence: US)
  Receive Date: 20130102
  Receipt Date: 20130305
  Transmission Date: 20140127
  Serious: No
  Sender: FDA-Public Use
  Company Number: US-AMGEN-USASP2012078635

PATIENT
  Age: 13 Year
  Sex: Female

DRUGS (2)
  1. ENBREL [Suspect]
     Indication: JUVENILE IDIOPATHIC ARTHRITIS
     Dosage: 25 MG, QWK
     Dates: start: 20120331, end: 201209
  2. ENBREL [Suspect]
     Indication: JUVENILE IDIOPATHIC ARTHRITIS

REACTIONS (2)
  - Arthritis [Not Recovered/Not Resolved]
  - Nasopharyngitis [Recovered/Resolved]
